FAERS Safety Report 25300541 (Version 4)
Quarter: 2025Q4

REPORT INFORMATION
  Report Type: Spontaneous
  Country: US (occurrence: US)
  Receive Date: 20250512
  Receipt Date: 20251118
  Transmission Date: 20260119
  Serious: Yes (Other)
  Sender: TEVA
  Company Number: US-TEVA-VS-3329156

PATIENT
  Age: 69 Year
  Sex: Male

DRUGS (7)
  1. MEGESTROL [Suspect]
     Active Substance: MEGESTROL
     Indication: Weight decreased
     Dosage: ACETATE
     Route: 065
  2. PEMBROLIZUMAB [Suspect]
     Active Substance: PEMBROLIZUMAB
     Indication: Non-small cell lung cancer stage IV
     Route: 065
  3. GABAPENTIN [Suspect]
     Active Substance: GABAPENTIN
     Indication: Cancer pain
     Route: 065
  4. MORPHINE [Suspect]
     Active Substance: MORPHINE
     Indication: Cancer pain
     Dosage: EXTENDED-RELEASE
     Route: 065
  5. CARBOPLATIN [Suspect]
     Active Substance: CARBOPLATIN
     Indication: Non-small cell lung cancer stage IV
     Dosage: FOUR CYCLES
     Route: 065
  6. ACETAMINOPHEN\HYDROCODONE [Suspect]
     Active Substance: ACETAMINOPHEN\HYDROCODONE
     Indication: Cancer pain
     Dosage: TIME INTERVAL: 0.33333333 DAYS: HYDROCODONE/ACETAMINOPHEN 10-325MG
     Route: 065
  7. PACLITAXEL [Suspect]
     Active Substance: PACLITAXEL
     Indication: Non-small cell lung cancer stage IV
     Dosage: FOUR CYCLES
     Route: 065

REACTIONS (3)
  - Hypogonadism [Not Recovered/Not Resolved]
  - Adrenal insufficiency [Recovering/Resolving]
  - Fatigue [Recovering/Resolving]
